FAERS Safety Report 16400502 (Version 2)
Quarter: 2019Q2

REPORT INFORMATION
  Report Type: Report from Study
  Country: GE (occurrence: GE)
  Receive Date: 20190606
  Receipt Date: 20190613
  Transmission Date: 20190711
  Serious: Yes (Other)
  Sender: FDA-Public Use
  Company Number: GE-JNJFOC-20190600431

PATIENT
  Age: 42 Year
  Sex: Female
  Weight: 60.1 kg

DRUGS (11)
  1. MOXIFLOXACIN. [Suspect]
     Active Substance: MOXIFLOXACIN
     Indication: PULMONARY TUBERCULOSIS
     Route: 048
     Dates: start: 20190422, end: 20190518
  2. METAMIZOLE SODIUM [Concomitant]
     Active Substance: METAMIZOLE SODIUM
     Indication: PYREXIA
     Route: 048
     Dates: start: 20190418
  3. PRETOMANID [Suspect]
     Active Substance: PRETOMANID
     Indication: PULMONARY TUBERCULOSIS
     Route: 048
     Dates: start: 20190422, end: 20190518
  4. GLUCOSE [Concomitant]
     Active Substance: DEXTROSE
     Indication: HEPATIC ENZYME INCREASED
     Route: 042
     Dates: start: 20190519
  5. PYRAZINAMIDE. [Suspect]
     Active Substance: PYRAZINAMIDE
     Indication: PULMONARY TUBERCULOSIS
     Route: 048
     Dates: start: 20190422, end: 20190518
  6. SODIUM CHLORIDE. [Concomitant]
     Active Substance: SODIUM CHLORIDE
     Indication: HYPERHIDROSIS
     Route: 042
     Dates: start: 20190519
  7. SODIUM CHLORIDE. [Concomitant]
     Active Substance: SODIUM CHLORIDE
     Indication: HEPATIC ENZYME INCREASED
     Route: 042
     Dates: start: 20190416, end: 20190513
  8. SIRTURO [Suspect]
     Active Substance: BEDAQUILINE FUMARATE
     Indication: PULMONARY TUBERCULOSIS
     Route: 048
     Dates: start: 20190422, end: 20190518
  9. SODIUM CHLORIDE. [Concomitant]
     Active Substance: SODIUM CHLORIDE
     Indication: HEPATIC ENZYME INCREASED
     Route: 042
     Dates: start: 20190519
  10. SODIUM CHLORIDE. [Concomitant]
     Active Substance: SODIUM CHLORIDE
     Indication: HYPERHIDROSIS
     Route: 042
     Dates: start: 20190416, end: 20190513
  11. PHENYLEPHRINE [Concomitant]
     Active Substance: PHENYLEPHRINE\PHENYLEPHRINE HYDROCHLORIDE
     Indication: MYDRIASIS
     Route: 031
     Dates: start: 20190418, end: 20190418

REACTIONS (1)
  - Hepatic enzyme increased [Recovering/Resolving]

NARRATIVE: CASE EVENT DATE: 20190513
